FAERS Safety Report 10935665 (Version 2)
Quarter: 2015Q2

REPORT INFORMATION
  Report Type: Spontaneous
  Country: US (occurrence: US)
  Receive Date: 20150320
  Receipt Date: 20150424
  Transmission Date: 20150821
  Serious: No
  Sender: FDA-Public Use
  Company Number: US-PFIZER INC-2015099019

PATIENT
  Sex: Female

DRUGS (1)
  1. PENICILLIN G BENZATHINE/PENICILLIN G PROCAINE [Suspect]
     Active Substance: PENICILLIN G BENZATHINE\PENICILLIN G PROCAINE
     Dosage: UNK

REACTIONS (3)
  - Pruritus [Unknown]
  - Chest discomfort [Unknown]
  - Drug hypersensitivity [Unknown]
